FAERS Safety Report 8055125-9 (Version None)
Quarter: 2012Q1

REPORT INFORMATION
  Report Type: 
  Country: None (occurrence: None)
  Receive Date: 20120119
  Receipt Date: 20120113
  Transmission Date: 20120608
  Serious: No
  Sender: FDA-Public Use
  Company Number: US-B.I. PHARMACEUTICALS,INC./RIDGEFIELD-2012-BP-00898BP

PATIENT
  Age: 78 Year
  Sex: Male

DRUGS (1)
  1. PERSANTINE [Suspect]

REACTIONS (1)
  - DRUG INTOLERANCE [None]
